FAERS Safety Report 21866145 (Version 3)
Quarter: 2023Q1

REPORT INFORMATION
  Report Type: Spontaneous
  Country: PL (occurrence: PL)
  Receive Date: 20230116
  Receipt Date: 20230202
  Transmission Date: 20230418
  Serious: Yes (Other)
  Sender: FDA-Public Use
  Company Number: PL-002147023-NVSC2023PL007494

PATIENT
  Age: 43 Year
  Sex: Female

DRUGS (7)
  1. ZOLEDRONIC ACID [Suspect]
     Active Substance: ZOLEDRONIC ACID
     Indication: Bone disorder
     Dosage: UNK
     Route: 065
     Dates: start: 201705
  2. ZOLEDRONIC ACID [Suspect]
     Active Substance: ZOLEDRONIC ACID
     Indication: Prophylaxis
  3. SUNITINIB [Concomitant]
     Active Substance: SUNITINIB
     Indication: Renal cell carcinoma
     Dosage: 50 MG, QD
     Route: 065
     Dates: start: 201705
  4. SUNITINIB [Concomitant]
     Active Substance: SUNITINIB
     Indication: Neuroendocrine carcinoma
     Dosage: 37.5 MG, QD
     Route: 065
  5. SUNITINIB [Concomitant]
     Active Substance: SUNITINIB
     Dosage: 25 MG, QD
     Route: 065
  6. LEVOTHYROXINE [Concomitant]
     Active Substance: LEVOTHYROXINE
     Indication: Blood thyroid stimulating hormone abnormal
     Dosage: UNK
     Route: 065
     Dates: start: 2017
  7. OCTREOTIDE [Concomitant]
     Active Substance: OCTREOTIDE
     Indication: Neuroendocrine carcinoma
     Dosage: UNK
     Route: 065
     Dates: start: 2018

REACTIONS (1)
  - Osteonecrosis of jaw [Unknown]
